FAERS Safety Report 15245606 (Version 2)
Quarter: 2018Q3

REPORT INFORMATION
  Report Type: Spontaneous
  Country: US (occurrence: US)
  Receive Date: 20180806
  Receipt Date: 20180906
  Transmission Date: 20181010
  Serious: No
  Sender: FDA-Public Use
  Company Number: US-ASTRAZENECA-2018SE98150

PATIENT
  Age: 28848 Day
  Sex: Female
  Weight: 40.4 kg

DRUGS (1)
  1. SYMBICORT [Suspect]
     Active Substance: BUDESONIDE\FORMOTEROL FUMARATE DIHYDRATE
     Indication: CHRONIC OBSTRUCTIVE PULMONARY DISEASE
     Dosage: 160/4.5 MCG, TWO PUFFS TWICE A DAY
     Route: 055
     Dates: start: 2013

REACTIONS (4)
  - Intentional device misuse [Recovered/Resolved]
  - Fatigue [Unknown]
  - Device malfunction [Unknown]
  - Tremor [Unknown]

NARRATIVE: CASE EVENT DATE: 20180724
